FAERS Safety Report 21095101 (Version 1)
Quarter: 2022Q3

REPORT INFORMATION
  Report Type: Spontaneous
  Country: US (occurrence: None)
  Receive Date: 20220716
  Receipt Date: 20220716
  Transmission Date: 20221027
  Serious: Yes (Other)
  Sender: FDA-Public Use
  Company Number: None

PATIENT
  Age: 44 Year
  Sex: Female
  Weight: 54 kg

DRUGS (4)
  1. NURTEC ODT [Suspect]
     Active Substance: RIMEGEPANT SULFATE
     Indication: Migraine
     Dosage: OTHER FREQUENCY : EVERY OTHER DAY;?
  2. LT4 [Concomitant]
  3. TYLENOL WITH CODEINE [Concomitant]
     Active Substance: ACETAMINOPHEN\CODEINE PHOSPHATE
  4. VITAMIN B12 [Concomitant]
     Active Substance: CYANOCOBALAMIN

REACTIONS (5)
  - Anxiety [None]
  - Loss of personal independence in daily activities [None]
  - Memory impairment [None]
  - Attention deficit hyperactivity disorder [None]
  - Educational problem [None]

NARRATIVE: CASE EVENT DATE: 20210830
